FAERS Safety Report 7764159-0 (Version None)
Quarter: 2011Q3

REPORT INFORMATION
  Report Type: 
  Country: None (occurrence: None)
  Receive Date: 20110916
  Receipt Date: 20110901
  Transmission Date: 20111222
  Serious: Yes (Hospitalization)
  Sender: FDA-Public Use
  Company Number: 1000023678

PATIENT
  Age: 27 Year
  Sex: Female

DRUGS (3)
  1. XANAX [Concomitant]
  2. ZOLPIDEM TARTRATE [Concomitant]
  3. CITALOPRAM HYDROBROMIDE [Suspect]
     Indication: DEPRESSION
     Dosage: 40 MG (40 MG, 1 IN 1 D),
     Dates: start: 20100701, end: 20110825

REACTIONS (5)
  - CROHN'S DISEASE [None]
  - DIARRHOEA HAEMORRHAGIC [None]
  - ABDOMINAL PAIN [None]
  - COLITIS [None]
  - FOLATE DEFICIENCY [None]
